FAERS Safety Report 10566239 (Version 1)
Quarter: 2014Q4

REPORT INFORMATION
  Report Type: Spontaneous
  Country: US (occurrence: US)
  Receive Date: 20141105
  Receipt Date: 20141105
  Transmission Date: 20150529
  Serious: Yes (Other)
  Sender: FDA-Public Use
  Company Number: US-WATSON-2014-23378

PATIENT
  Sex: Male

DRUGS (2)
  1. ANDRODERM [Suspect]
     Active Substance: TESTOSTERONE
     Indication: BLOOD TESTOSTERONE DECREASED
     Dosage: ^AS PRESCRIBED AND IN A FORESEEABLE MANNER^
     Route: 062
  2. AXIRON [Suspect]
     Active Substance: TESTOSTERONE
     Indication: BLOOD TESTOSTERONE DECREASED
     Dosage: ^AS PRESCRIBED AND IN A FORESEEABLE MANNER^
     Route: 065

REACTIONS (2)
  - Myocardial infarction [Unknown]
  - Pulmonary embolism [Unknown]
